FAERS Safety Report 7429706-7 (Version None)
Quarter: 2011Q2

REPORT INFORMATION
  Report Type: 
  Country: None (occurrence: None)
  Receive Date: 20110421
  Receipt Date: 20110419
  Transmission Date: 20111010
  Serious: Yes (Hospitalization)
  Sender: FDA-Public Use
  Company Number: US-B.I. PHARMACEUTICALS,INC./RIDGEFIELD-2011-BP-11197BP

PATIENT
  Sex: Male

DRUGS (12)
  1. GLUCOSAMINE/CONDROITON [Concomitant]
     Indication: VITAMIN SUPPLEMENTATION
  2. ASPIRIN [Concomitant]
     Indication: PROPHYLAXIS
     Dosage: 81 MCG
  3. PRADAXA [Suspect]
     Indication: ATRIAL FIBRILLATION
     Dosage: 300 MG
     Route: 048
     Dates: start: 20110201, end: 20110330
  4. PRAVASTIN [Concomitant]
     Indication: BLOOD CHOLESTEROL INCREASED
     Dosage: 60 MG
  5. FISH OIL [Concomitant]
     Indication: VITAMIN SUPPLEMENTATION
  6. UNSPECIFIED MEDICATION TO TREAT DM [Concomitant]
     Indication: DIABETES MELLITUS
  7. AMOXICILLIN [Concomitant]
     Indication: DENTAL DISORDER PROPHYLAXIS
  8. PRADAXA [Suspect]
     Dosage: 300 MG
     Route: 048
     Dates: start: 20110407
  9. FUROSEMIDE [Concomitant]
     Indication: HYPERTENSION
  10. FUROSEMIDE [Concomitant]
     Indication: OEDEMA PERIPHERAL
  11. DIGOXIN [Concomitant]
     Indication: ATRIAL FIBRILLATION
  12. TOPROL-XL [Concomitant]
     Indication: HYPERTENSION
     Dosage: 50 MG

REACTIONS (3)
  - LIMB INJURY [None]
  - DIARRHOEA [None]
  - DEHYDRATION [None]
